FAERS Safety Report 9089251 (Version 2)
Quarter: 2013Q1

REPORT INFORMATION
  Report Type: Report from Study
  Country: DE (occurrence: DE)
  Receive Date: 20130131
  Receipt Date: 20130207
  Transmission Date: 20140127
  Serious: Yes (Death, Hospitalization, Disabling)
  Sender: FDA-Public Use
  Company Number: DE-PFIZER INC-2012307121

PATIENT
  Age: 64 Year
  Sex: Female
  Weight: 74 kg

DRUGS (17)
  1. RAPAMUNE [Suspect]
     Indication: IMMUNOSUPPRESSION
     Dosage: 3.5 ML, 1X/DAY
     Dates: start: 20120927, end: 20121123
  2. MYCOPHENOLATE MOFETIL [Suspect]
     Indication: IMMUNOSUPPRESSION
     Dosage: 5 ML, 2X/DAY
     Dates: start: 20120928
  3. RITUXIMAB [Suspect]
     Indication: IMMUNOSUPPRESSION
     Dosage: 375 MG/M2 ON DAY -1
  4. ATG-FRESENIUS [Suspect]
     Indication: IMMUNOSUPPRESSION
     Dosage: 20 MG/KG FROM DAY -4 TO -2
  5. ACICLOVIR [Concomitant]
     Indication: INFECTION PROPHYLAXIS
     Dosage: UNK
     Route: 048
     Dates: end: 20121112
  6. VALCYTE [Concomitant]
     Indication: HERPES SIMPLEX
     Dosage: UNK
     Route: 048
     Dates: start: 20121112, end: 20121127
  7. SIMVA HEXAL [Concomitant]
     Indication: HYPERCHOLESTEROLAEMIA
     Dosage: UNK
     Route: 048
  8. DIGIMERCK [Concomitant]
     Indication: CARDIAC FAILURE
     Dosage: UNK
     Route: 048
  9. FLUCONAZOLE [Concomitant]
     Indication: PROPHYLAXIS
     Dosage: UNK
     Route: 048
     Dates: end: 20121125
  10. NEXIUM [Concomitant]
     Indication: PROPHYLAXIS
     Dosage: UNK
     Route: 048
     Dates: start: 20121106
  11. PREDNISOLON [Concomitant]
     Indication: GRAFT VERSUS HOST DISEASE
     Dosage: UNK
     Route: 048
     Dates: start: 20121102
  12. FENTANYL [Concomitant]
     Indication: PAIN
     Dosage: UNK
     Route: 062
  13. POTASSIUM [Concomitant]
     Indication: HYPOKALAEMIA
     Dosage: UNK
     Route: 048
     Dates: start: 20121109
  14. MAGNESIUM [Concomitant]
     Indication: BLOOD MAGNESIUM DECREASED
     Dosage: UNK
     Route: 048
     Dates: start: 20121112
  15. IDEOS [Concomitant]
     Indication: BLOOD CALCIUM DECREASED
     Dosage: UNK
     Route: 048
     Dates: start: 20121115
  16. TREOSULFAN [Concomitant]
     Dosage: 14 G/M2 FROM DAY -6 TO -4
  17. FLUDARABINE [Concomitant]
     Dosage: 30 MG/M2/24H FROM DAY -6 TO -2

REACTIONS (1)
  - Toxic neuropathy [Fatal]
